FAERS Safety Report 15099604 (Version 2)
Quarter: 2018Q3

REPORT INFORMATION
  Report Type: Report from Study
  Country: FR (occurrence: FR)
  Receive Date: 20180702
  Receipt Date: 20180713
  Transmission Date: 20181010
  Serious: Yes (Hospitalization, Other)
  Sender: FDA-Public Use
  Company Number: FR-JAZZ-2018-FR-010275

PATIENT

DRUGS (2)
  1. DEFITELIO [Suspect]
     Active Substance: DEFIBROTIDE SODIUM
     Dosage: 27 MG/KG, QD
     Route: 042
     Dates: start: 201604, end: 20160417
  2. DEFITELIO [Suspect]
     Active Substance: DEFIBROTIDE SODIUM
     Indication: PROPHYLAXIS
     Dosage: 25 MG/KG, QD
     Route: 042
     Dates: start: 20160408, end: 201604

REACTIONS (18)
  - Tachycardia [Unknown]
  - Hyperleukocytosis [Recovering/Resolving]
  - Acute kidney injury [Unknown]
  - Platelet disorder [Unknown]
  - Eye swelling [Unknown]
  - Eczema [Unknown]
  - Weight decreased [Unknown]
  - Blood pressure decreased [Unknown]
  - Graft versus host disease in skin [Recovering/Resolving]
  - Dehydration [Unknown]
  - Arthritis bacterial [Unknown]
  - Hepatocellular injury [Unknown]
  - Skin discolouration [Unknown]
  - Primary immunodeficiency syndrome [Unknown]
  - Gastrointestinal disorder [Unknown]
  - Abdominal pain [Recovering/Resolving]
  - Food allergy [Unknown]
  - Malaise [Unknown]

NARRATIVE: CASE EVENT DATE: 2016
